FAERS Safety Report 8796266 (Version 3)
Quarter: 2012Q4

REPORT INFORMATION
  Report Type: 
  Country: BR (occurrence: BR)
  Receive Date: 20120919
  Receipt Date: 20121008
  Transmission Date: 20130627
  Serious: Yes (Hospitalization, Other)
  Sender: FDA-Public Use
  Company Number: BR-PFIZER INC-2012097396

PATIENT
  Age: 77 Year
  Sex: Male
  Weight: 76 kg

DRUGS (12)
  1. SUTENT [Suspect]
     Indication: RENAL CELL CARCINOMA
     Dosage: 50 mg, cyclic (4/2)
     Route: 048
     Dates: start: 20120327
  2. SUTENT [Suspect]
     Dosage: UNK, cyclic (2x1)
     Dates: end: 201209
  3. INSULIN [Concomitant]
     Indication: DIABETES MELLITUS
     Dosage: unspecified dose, once daily
  4. APRESOLIN [Concomitant]
     Dosage: 50 mg, 2x/day
  5. CARDIZEM [Concomitant]
     Dosage: 30 mg, 2x/day
  6. ATENOL [Concomitant]
     Dosage: 50 mg, 2x/day
  7. MONOCORDIL [Concomitant]
     Dosage: 40 mg, 2x/day
  8. VASTAREL [Concomitant]
     Dosage: 35 mg, 1x/day
  9. LIPITOR [Concomitant]
     Dosage: 40 mg, 1x/day
  10. PLAVIX [Concomitant]
     Dosage: 75 mg, 1x/day (at lunch time)
  11. LEXAPRO [Concomitant]
     Dosage: 10 mg, 1x/day (in the morning)
  12. PANTOCAL [Concomitant]
     Dosage: 40 mg, 1x/day (in the morning)

REACTIONS (23)
  - Infarction [Recovered/Resolved]
  - Myocardial infarction [Recovered/Resolved]
  - Dysstasia [Not Recovered/Not Resolved]
  - Walking disability [Unknown]
  - Muscular weakness [Unknown]
  - Dehydration [Recovering/Resolving]
  - Decreased appetite [Recovering/Resolving]
  - Nausea [Recovering/Resolving]
  - Asthenia [Recovering/Resolving]
  - Sluggishness [Recovering/Resolving]
  - Somnolence [Recovering/Resolving]
  - Diarrhoea [Recovering/Resolving]
  - Functional gastrointestinal disorder [Recovering/Resolving]
  - Gait disturbance [Not Recovered/Not Resolved]
  - Motor dysfunction [Not Recovered/Not Resolved]
  - Tremor [Recovering/Resolving]
  - Dry skin [Recovering/Resolving]
  - Dry mouth [Recovering/Resolving]
  - Lip exfoliation [Recovering/Resolving]
  - Fatigue [Recovering/Resolving]
  - Oral pain [Recovering/Resolving]
  - Blood urea abnormal [Recovering/Resolving]
  - Blood creatinine abnormal [Recovering/Resolving]
